FAERS Safety Report 10281921 (Version 1)
Quarter: 2014Q3

REPORT INFORMATION
  Report Type: Spontaneous
  Country: BR (occurrence: BR)
  Receive Date: 20140707
  Receipt Date: 20140707
  Transmission Date: 20150326
  Serious: Yes (Hospitalization)
  Sender: FDA-Public Use
  Company Number: BR-BRISTOL-MYERS SQUIBB COMPANY-21148101

PATIENT
  Sex: Male

DRUGS (5)
  1. METFORMIN HCL [Suspect]
     Active Substance: METFORMIN HYDROCHLORIDE
  2. TICAGRELOR [Suspect]
     Active Substance: TICAGRELOR
     Dates: start: 201311, end: 20140515
  3. OMEPRAZOLE. [Suspect]
     Active Substance: OMEPRAZOLE
  4. GLIMEPIRIDE. [Concomitant]
     Active Substance: GLIMEPIRIDE
  5. SOMALGIN CARDIO [Concomitant]
     Active Substance: ASPIRIN\DIHYDROXYALUMINUM AMINOACETATE ANHYDROUS\MAGNESIUM CARBONATE

REACTIONS (1)
  - Angioplasty [Unknown]

NARRATIVE: CASE EVENT DATE: 20140515
